FAERS Safety Report 25739932 (Version 3)
Quarter: 2025Q4

REPORT INFORMATION
  Report Type: Spontaneous
  Country: US (occurrence: US)
  Receive Date: 20250829
  Receipt Date: 20251118
  Transmission Date: 20260117
  Serious: Yes (Other)
  Sender: ROCHE
  Company Number: US-ROCHE-3566011

PATIENT
  Sex: Male

DRUGS (1)
  1. ACTEMRA [Suspect]
     Active Substance: TOCILIZUMAB
     Indication: Rheumatoid arthritis
     Route: 058
     Dates: start: 201810

REACTIONS (7)
  - Thrombocytopenia [Unknown]
  - Liver function test abnormal [Unknown]
  - Arthralgia [Unknown]
  - Arthralgia [Unknown]
  - Infection [Unknown]
  - Serum ferritin increased [Unknown]
  - Oedema peripheral [Unknown]
